FAERS Safety Report 11818617 (Version 1)
Quarter: 2015Q4

REPORT INFORMATION
  Report Type: Spontaneous
  Country: US (occurrence: None)
  Receive Date: 20151209
  Receipt Date: 20151209
  Transmission Date: 20160305
  Serious: Yes (Death)
  Sender: FDA-Public Use
  Company Number: None

PATIENT
  Age: 59 Year
  Sex: Female

DRUGS (1)
  1. NEXAVAR [Suspect]
     Active Substance: SORAFENIB
     Indication: ACUTE MYELOID LEUKAEMIA
     Dosage: 400MG (2 TABLETS)  ONCE DAILY ORAL
     Route: 048
     Dates: start: 20150605, end: 20151203

REACTIONS (1)
  - Death [None]

NARRATIVE: CASE EVENT DATE: 20151203
